FAERS Safety Report 16280260 (Version 1)
Quarter: 2019Q2

REPORT INFORMATION
  Report Type: Spontaneous
  Country: CN (occurrence: CN)
  Receive Date: 20190507
  Receipt Date: 20190507
  Transmission Date: 20190711
  Serious: Yes (Other)
  Sender: FDA-Public Use
  Company Number: CN-GLAXOSMITHKLINE-CN2019APC077110

PATIENT

DRUGS (3)
  1. MEZLOCILLIN SODIUM + SULBACTAM SODIUM [Suspect]
     Active Substance: MEZLOCILLIN SODIUM\SULBACTAM SODIUM
     Indication: ANTI-INFECTIVE THERAPY
     Dosage: 1.875 G, BID
     Route: 042
     Dates: start: 20190427, end: 20190427
  2. CEFUROXIME SODIUM. [Suspect]
     Active Substance: CEFUROXIME SODIUM
     Indication: ANTI-INFECTIVE THERAPY
     Dosage: 1.500 G, BID
     Route: 042
     Dates: start: 20190426, end: 20190426
  3. SODIUM AESCINATE FOR INJECTION [Concomitant]
     Indication: CARDIOVASCULAR INSUFFICIENCY
     Dosage: 15.000 MG, 1D
     Route: 042
     Dates: start: 20190419, end: 20190427

REACTIONS (2)
  - Hypersensitivity [Recovering/Resolving]
  - Dermatitis allergic [Recovering/Resolving]

NARRATIVE: CASE EVENT DATE: 20190427
